FAERS Safety Report 16812854 (Version 1)
Quarter: 2019Q3

REPORT INFORMATION
  Report Type: Spontaneous
  Country: BR (occurrence: BR)
  Receive Date: 20190916
  Receipt Date: 20190916
  Transmission Date: 20191005
  Serious: Yes (Life-Threatening)
  Sender: FDA-Public Use
  Company Number: BR-BIOMARINAP-BR-2019-125612

PATIENT

DRUGS (2)
  1. NAGLAZYME [Suspect]
     Active Substance: GALSULFASE
     Indication: MUCOPOLYSACCHARIDOSIS VI
     Dosage: 40 MILLIGRAM, QW
  2. LORATADINE. [Concomitant]
     Active Substance: LORATADINE
     Indication: PRODUCT USED FOR UNKNOWN INDICATION
     Dosage: 10 MILLIGRAM

REACTIONS (8)
  - Panic attack [Unknown]
  - Panic disorder [Unknown]
  - Heart rate increased [Unknown]
  - Product dose omission [Unknown]
  - Hyperhidrosis [Unknown]
  - Cold sweat [Unknown]
  - Fear [Unknown]
  - Feeling cold [Unknown]

NARRATIVE: CASE EVENT DATE: 20190530
